FAERS Safety Report 8106886-1 (Version None)
Quarter: 2011Q4

REPORT INFORMATION
  Report Type: 
  Country: None (occurrence: None)
  Receive Date: 20111227
  Receipt Date: 20111123
  Transmission Date: 20120403
  Serious: No
  Sender: FDA-Public Use
  Company Number: PHEH2011US009393

PATIENT
  Age: 49 Year
  Sex: Female

DRUGS (1)
  1. GILENYA [Suspect]
     Dosage: UNK UKN, UNK, ORAL
     Route: 048

REACTIONS (2)
  - FREQUENT BOWEL MOVEMENTS [None]
  - ABDOMINAL DISCOMFORT [None]
